FAERS Safety Report 7685335-1 (Version None)
Quarter: 2011Q3

REPORT INFORMATION
  Report Type: 
  Country: None (occurrence: None)
  Receive Date: 20110816
  Receipt Date: 20110804
  Transmission Date: 20111222
  Serious: Yes (Hospitalization)
  Sender: FDA-Public Use
  Company Number: US-BAYER-201030323NA

PATIENT
  Age: 27 Year
  Sex: Female
  Weight: 90.703 kg

DRUGS (8)
  1. YAZ [Suspect]
     Indication: PRODUCT USED FOR UNKNOWN INDICATION
     Route: 048
     Dates: start: 20070101
  2. TRICOR [Concomitant]
     Indication: HYPERTRIGLYCERIDAEMIA
     Dosage: 145 MG, UNK
     Route: 048
     Dates: start: 20080606
  3. PRILOSEC [Concomitant]
     Indication: GASTROOESOPHAGEAL REFLUX DISEASE
  4. QUESTRAN [Concomitant]
     Indication: ABDOMINAL PAIN
  5. QUESTRAN [Concomitant]
     Indication: HYPERHIDROSIS
  6. QUESTRAN [Concomitant]
     Indication: PALPITATIONS
  7. PRILOSEC [Concomitant]
     Indication: DYSPEPSIA
     Dosage: UNK UNK, QD
  8. QUESTRAN [Concomitant]
     Indication: DIARRHOEA

REACTIONS (10)
  - CONSTIPATION [None]
  - NAUSEA [None]
  - ABDOMINAL PAIN [None]
  - HEPATOBILIARY SCAN ABNORMAL [None]
  - DIARRHOEA [None]
  - INCISION SITE PAIN [None]
  - GALLBLADDER INJURY [None]
  - CHOLECYSTITIS CHRONIC [None]
  - DYSPEPSIA [None]
  - GALLBLADDER DISORDER [None]
